FAERS Safety Report 9498433 (Version 1)
Quarter: 2013Q3

REPORT INFORMATION
  Report Type: Spontaneous
  Country: GB (occurrence: GB)
  Receive Date: 20130904
  Receipt Date: 20130904
  Transmission Date: 20140515
  Serious: Yes (Disabling)
  Sender: FDA-Public Use
  Company Number: GB-GLAXOSMITHKLINE-B0916996A

PATIENT
  Age: 53 Year
  Sex: Male

DRUGS (10)
  1. VENLAFAXINE [Suspect]
     Dosage: 150MG PER DAY
  2. LITHIUM [Suspect]
     Dosage: 1000MG PER DAY
  3. LAMOTRIGINE [Suspect]
     Dosage: 400MG PER DAY
  4. ARIPIPRAZOLE [Suspect]
     Dosage: 15MG PER DAY
  5. PERINDOPRIL [Concomitant]
     Dosage: 8MG PER DAY
  6. INDAPAMIDE [Concomitant]
     Dosage: 1.5MG PER DAY
  7. ATORVASTATIN [Concomitant]
     Dosage: 40MG PER DAY
  8. INSULIN GLARGINE [Concomitant]
  9. HUMALOG [Concomitant]
  10. BLOOD PRESSURE MEDICATION [Concomitant]

REACTIONS (5)
  - Balance disorder [Not Recovered/Not Resolved]
  - Dysphagia [Not Recovered/Not Resolved]
  - Hyperhidrosis [Not Recovered/Not Resolved]
  - Tremor [Unknown]
  - Fall [Unknown]
